FAERS Safety Report 18394667 (Version 5)
Quarter: 2022Q2

REPORT INFORMATION
  Report Type: Report from Study
  Country: US (occurrence: US)
  Receive Date: 20201017
  Receipt Date: 20220607
  Transmission Date: 20220720
  Serious: Yes (Hospitalization, Other)
  Sender: FDA-Public Use
  Company Number: None

PATIENT
  Sex: Female

DRUGS (1)
  1. COSENTYX [Suspect]
     Active Substance: SECUKINUMAB
     Indication: Psoriasis
     Dosage: 300 MG, QMO
     Route: 058

REACTIONS (7)
  - COVID-19 [Recovered/Resolved]
  - Neurological symptom [Unknown]
  - Autoimmune disorder [Unknown]
  - Parkinson^s disease [Unknown]
  - Psoriasis [Unknown]
  - Alopecia [Unknown]
  - Skin haemorrhage [Unknown]
